FAERS Safety Report 24310948 (Version 1)
Quarter: 2024Q3

REPORT INFORMATION
  Report Type: Spontaneous
  Country: SE (occurrence: SE)
  Receive Date: 20240912
  Receipt Date: 20240912
  Transmission Date: 20241017
  Serious: Yes (Life-Threatening)
  Sender: RANBAXY
  Company Number: SE-SEMPA-2024-005239

PATIENT
  Age: 78 Year
  Sex: Male

DRUGS (1)
  1. ATORVASTATIN [Suspect]
     Active Substance: ATORVASTATIN
     Indication: Hypercholesterolaemia
     Dosage: 40 MILLIGRAM, QD
     Route: 048
     Dates: start: 20240529

REACTIONS (4)
  - Dizziness [Unknown]
  - Respiratory disorder [Unknown]
  - Heart rate decreased [Recovering/Resolving]
  - Myalgia [Recovered/Resolved]
